FAERS Safety Report 8280707-9 (Version None)
Quarter: 2012Q2

REPORT INFORMATION
  Report Type: 
  Country: None (occurrence: None)
  Receive Date: 20120412
  Receipt Date: 20111206
  Transmission Date: 20120825
  Serious: No
  Sender: FDA-Public Use
  Company Number: US-ASTRAZENECA-2011SE49593

PATIENT
  Age: 50 Year
  Sex: Male
  Weight: 99.3 kg

DRUGS (4)
  1. LOVAZA [Concomitant]
     Indication: DYSLIPIDAEMIA
  2. NEXIUM [Suspect]
     Indication: GASTROOESOPHAGEAL REFLUX DISEASE
     Route: 048
     Dates: start: 20090804
  3. LIPITOR [Concomitant]
     Indication: HYPERCHOLESTEROLAEMIA
  4. CARDURA [Concomitant]
     Indication: BENIGN PROSTATIC HYPERPLASIA

REACTIONS (2)
  - VISUAL IMPAIRMENT [None]
  - DYSGRAPHIA [None]
